FAERS Safety Report 7066386-7 (Version None)
Quarter: 2010Q4

REPORT INFORMATION
  Report Type: 
  Country: None (occurrence: None)
  Receive Date: 20101027
  Receipt Date: 20100111
  Transmission Date: 20110411
  Serious: Yes (Other)
  Sender: FDA-Public Use
  Company Number: US-WYE-H10850509

PATIENT
  Sex: Female
  Weight: 60.84 kg

DRUGS (8)
  1. PREMPRO [Suspect]
     Indication: MENOPAUSAL SYMPTOMS
     Route: 048
     Dates: start: 20090101, end: 20090820
  2. LIPITOR [Concomitant]
     Dosage: UNKNOWN
     Route: 065
  3. SYNTHROID [Concomitant]
     Dosage: UNKNOWN
     Route: 065
  4. NORVASC [Concomitant]
     Dosage: UNKNOWN
     Route: 065
  5. RESTORIL [Concomitant]
     Dosage: UNKNOWN
     Route: 065
  6. ATIVAN [Concomitant]
     Dosage: UNKNOWN
     Route: 065
  7. ESTRING [Suspect]
     Indication: ATROPHIC VULVOVAGINITIS
     Dosage: ^2^
     Route: 067
     Dates: start: 20050101
  8. EFFEXOR [Concomitant]
     Dosage: UNKNOWN
     Route: 065

REACTIONS (1)
  - UTERINE HAEMORRHAGE [None]
